FAERS Safety Report 5285638-4 (Version None)
Quarter: 2007Q1

REPORT INFORMATION
  Report Type: 
  Country: None (occurrence: None)
  Receive Date: 20070116
  Receipt Date: 20061204
  Transmission Date: 20070707
  Serious: No
  Sender: FDA-Public Use
  Company Number: 2006SP004277

PATIENT
  Age: 57 Year
  Sex: Male

DRUGS (5)
  1. LUNESTA [Suspect]
     Indication: SLEEP DISORDER
     Dosage: 21 MG;1X;ORAL
     Route: 048
     Dates: start: 20060101, end: 20060101
  2. AVANDAMET [Concomitant]
  3. TRICOR [Concomitant]
  4. DIOVAN HCT [Concomitant]
  5. AMARYL [Concomitant]

REACTIONS (2)
  - ACCIDENTAL OVERDOSE [None]
  - SOMNOLENCE [None]
